FAERS Safety Report 25475387 (Version 1)
Quarter: 2025Q2

REPORT INFORMATION
  Report Type: Spontaneous
  Country: US (occurrence: US)
  Receive Date: 20250624
  Receipt Date: 20250624
  Transmission Date: 20250717
  Serious: No
  Sender: Kenvue
  Company Number: US-KENVUE-20250511023

PATIENT

DRUGS (3)
  1. ZYRTEC [Suspect]
     Active Substance: CETIRIZINE HYDROCHLORIDE
     Indication: Product used for unknown indication
     Route: 065
  2. depression meds [Concomitant]
     Indication: Depression
     Route: 065
  3. anxiety meds [Concomitant]
     Indication: Anxiety
     Route: 065

REACTIONS (2)
  - Withdrawal syndrome [Unknown]
  - Mental disorder [Unknown]
